FAERS Safety Report 24660054 (Version 2)
Quarter: 2024Q4

REPORT INFORMATION
  Report Type: Spontaneous
  Country: ES (occurrence: ES)
  Receive Date: 20241125
  Receipt Date: 20241206
  Transmission Date: 20250115
  Serious: Yes (Death, Other)
  Sender: TEVA
  Company Number: ES-TEVA-VS-3267516

PATIENT
  Age: 62 Year
  Sex: Female

DRUGS (9)
  1. PACLITAXEL [Suspect]
     Active Substance: PACLITAXEL
     Indication: Triple negative breast cancer
     Route: 065
     Dates: start: 2022, end: 2022
  2. AMPICILLIN [Concomitant]
     Active Substance: AMPICILLIN
     Indication: Evidence based treatment
     Route: 065
     Dates: start: 202301
  3. DEXAMETHASONE [Concomitant]
     Active Substance: DEXAMETHASONE
     Indication: Product used for unknown indication
     Route: 065
     Dates: start: 202204
  4. BEVACIZUMAB [Suspect]
     Active Substance: BEVACIZUMAB
     Indication: Triple negative breast cancer
     Route: 065
     Dates: start: 2022, end: 2022
  5. SACITUZUMAB GOVITECAN [Concomitant]
     Active Substance: SACITUZUMAB GOVITECAN
     Indication: Metastases to meninges
     Dosage: RECEIVED EIGHT CYCLES
     Route: 065
     Dates: start: 2023, end: 2023
  6. ACYCLOVIR [Concomitant]
     Active Substance: ACYCLOVIR
     Indication: Evidence based treatment
     Route: 065
     Dates: start: 202301
  7. CEFTRIAXONE [Concomitant]
     Active Substance: CEFTRIAXONE
     Indication: Evidence based treatment
     Route: 065
     Dates: start: 202301
  8. GEMCITABINE [Suspect]
     Active Substance: GEMCITABINE
     Indication: Triple negative breast cancer
     Route: 065
     Dates: start: 2023
  9. CARBOPLATIN [Suspect]
     Active Substance: CARBOPLATIN
     Indication: Triple negative breast cancer
     Dosage: RECEIVED AT AUC 5
     Route: 065
     Dates: start: 2023

REACTIONS (2)
  - Drug ineffective [Fatal]
  - Neurotoxicity [Unknown]

NARRATIVE: CASE EVENT DATE: 20220101
